FAERS Safety Report 8968263 (Version 1)
Quarter: 2012Q4

REPORT INFORMATION
  Report Type: 
  Country: JP (occurrence: JP)
  Receive Date: 20121217
  Receipt Date: 20121217
  Transmission Date: 20130627
  Serious: Yes (Other)
  Sender: FDA-Public Use
  Company Number: PHHY2012JP115070

PATIENT

DRUGS (1)
  1. GILENYA [Suspect]
     Dosage: 0.5 mg, UNK
     Route: 048

REACTIONS (10)
  - Lhermitte^s sign [Unknown]
  - Nuclear magnetic resonance imaging abnormal [Unknown]
  - Abnormal dreams [Unknown]
  - Sleep disorder [Unknown]
  - Poor quality sleep [Unknown]
  - Condition aggravated [Unknown]
  - Memory impairment [Unknown]
  - Hypoaesthesia [Unknown]
  - Depressed mood [Unknown]
  - Asthenia [Unknown]
